FAERS Safety Report 16608166 (Version 1)
Quarter: 2019Q3

REPORT INFORMATION
  Report Type: Spontaneous
  Country: US (occurrence: US)
  Receive Date: 20190719
  Receipt Date: 20190719
  Transmission Date: 20191004
  Serious: Yes (Other)
  Sender: FDA-Public Use
  Company Number: None

PATIENT
  Age: 47 Year
  Sex: Female
  Weight: 58.32 kg

DRUGS (1)
  1. BUPRENORPHINE / NALOXONE [Suspect]
     Active Substance: BUPRENORPHINE\NALOXONE
     Indication: DRUG DEPENDENCE
     Route: 060

REACTIONS (6)
  - Withdrawal syndrome [None]
  - Nausea [None]
  - Vomiting [None]
  - Tremor [None]
  - Product substitution issue [None]
  - Hyperhidrosis [None]
